FAERS Safety Report 6371457-4 (Version None)
Quarter: 2009Q3

REPORT INFORMATION
  Report Type: 
  Country: None (occurrence: None)
  Receive Date: 20090923
  Receipt Date: 20070905
  Transmission Date: 20100115
  Serious: Yes (Other)
  Sender: FDA-Public Use
  Company Number: US-ASTRAZENECA-2007UW13528

PATIENT
  Sex: Male
  Weight: 74.8 kg

DRUGS (17)
  1. SEROQUEL [Suspect]
     Indication: SCHIZOPHRENIA
     Route: 048
     Dates: start: 20031014
  2. SEROQUEL [Suspect]
     Indication: DEPRESSION
     Route: 048
     Dates: start: 20031014
  3. SEROQUEL [Suspect]
     Indication: ANXIETY
     Route: 048
     Dates: start: 20031014
  4. PAXIL [Concomitant]
     Dosage: 20-40MG
     Route: 065
  5. ZYPREXA [Concomitant]
     Dosage: 5-40MG
     Route: 065
  6. SYNTHROID [Concomitant]
     Route: 065
  7. AUGMENTIN [Concomitant]
     Dosage: 250MG/5ML
     Route: 065
  8. PEXEVA [Concomitant]
     Route: 065
  9. GEODON [Concomitant]
     Route: 065
  10. EQUETRO [Concomitant]
     Route: 065
  11. ALLEGRA [Concomitant]
     Route: 048
  12. ROBITUSSIN [Concomitant]
     Dosage: ONE TEA SPOON, EVERY SIX HOURS AS REQUIRED
     Route: 048
  13. TRILEPTAL [Concomitant]
     Dosage: 100-300MG
     Route: 065
  14. LOPERAMIDE HCL [Concomitant]
     Route: 065
  15. CLARINEX [Concomitant]
     Route: 065
  16. RANITIDINE [Concomitant]
     Route: 065
  17. DEPAKOTE [Concomitant]
     Route: 065

REACTIONS (1)
  - PANCREATITIS [None]
